FAERS Safety Report 5087156-5 (Version None)
Quarter: 2006Q3

REPORT INFORMATION
  Report Type: 
  Country: None (occurrence: None)
  Receive Date: 20060821
  Receipt Date: 20060814
  Transmission Date: 20061208
  Serious: Yes (Other)
  Sender: FDA-Public Use
  Company Number: CN-2006-023274

PATIENT
  Age: 36 Year
  Sex: Male
  Weight: 140 kg

DRUGS (1)
  1. ULTRAVIST 300 [Suspect]
     Indication: SKIN TEST
     Dosage: 1 ML, 1 DOSE, INTRAVENOUS
     Route: 042
     Dates: start: 20060811, end: 20060811

REACTIONS (7)
  - ABDOMINAL PAIN [None]
  - CHEST DISCOMFORT [None]
  - CONFUSIONAL STATE [None]
  - NAUSEA [None]
  - PALLOR [None]
  - PERIPHERAL COLDNESS [None]
  - VOMITING [None]
